FAERS Safety Report 19808548 (Version 1)
Quarter: 2021Q3

REPORT INFORMATION
  Report Type: Report from Study
  Country: DE (occurrence: DE)
  Receive Date: 20210908
  Receipt Date: 20210908
  Transmission Date: 20211014
  Serious: Yes (Death, Other)
  Sender: FDA-Public Use
  Company Number: DE-PFIZER INC-202101152855

PATIENT
  Sex: Female

DRUGS (3)
  1. DOCETAXEL. [Suspect]
     Active Substance: DOCETAXEL
     Indication: BREAST CANCER
     Dosage: 60?100 MG/M2, WITH A STARTING DOSE OF 75 MG/M2 (EVERY TWO WEEKS)
  2. EPIRUBICIN HCL [Suspect]
     Active Substance: EPIRUBICIN HYDROCHLORIDE
     Indication: BREAST CANCER
     Dosage: 38?120 MG/M2, WITH A STARTING DOSE OF OF 90 MG/M2
  3. CYCLOPHOSPHAMIDE. [Suspect]
     Active Substance: CYCLOPHOSPHAMIDE
     Indication: BREAST CANCER
     Dosage: 450?1200 MG/M2, WITH A STARTING DOSE OF 600 MG/M2 (EVERY TWO WEEKS)

REACTIONS (1)
  - Acute respiratory distress syndrome [Fatal]
